FAERS Safety Report 9227890 (Version 1)
Quarter: 2013Q2

REPORT INFORMATION
  Report Type: Spontaneous
  Country: US (occurrence: US)
  Receive Date: 20130412
  Receipt Date: 20130412
  Transmission Date: 20140414
  Serious: Yes (Other)
  Sender: FDA-Public Use
  Company Number: US-PFIZER INC-2013112311

PATIENT
  Sex: Female

DRUGS (2)
  1. XANAX [Suspect]
     Dosage: UNK
  2. VALIUM [Suspect]
     Dosage: UNK

REACTIONS (4)
  - Hepatitis B [Unknown]
  - Hepatitis C [Unknown]
  - Tooth disorder [Unknown]
  - Gingival bleeding [Unknown]
